FAERS Safety Report 21837221 (Version 1)
Quarter: 2023Q1

REPORT INFORMATION
  Report Type: Spontaneous
  Country: US (occurrence: US)
  Receive Date: 20230109
  Receipt Date: 20230109
  Transmission Date: 20230417
  Serious: No
  Sender: FDA-Public Use
  Company Number: US-LUPIN PHARMACEUTICALS INC.-2022-15038

PATIENT

DRUGS (1)
  1. SERTRALINE HYDROCHLORIDE [Suspect]
     Active Substance: SERTRALINE HYDROCHLORIDE
     Indication: Postpartum anxiety
     Dosage: 50 MILLIGRAM, QD (1 TABLET ONCE DAILY BY MOUTH)
     Route: 048

REACTIONS (3)
  - Gastrooesophageal reflux disease [Unknown]
  - Exposure during pregnancy [Unknown]
  - Maternal exposure during breast feeding [Unknown]
